FAERS Safety Report 6769264-3 (Version None)
Quarter: 2010Q2

REPORT INFORMATION
  Report Type: 
  Country: None (occurrence: None)
  Receive Date: 20100520
  Receipt Date: 20090331
  Transmission Date: 20101027
  Serious: Yes (Other)
  Sender: FDA-Public Use
  Company Number: 2007090060

PATIENT
  Age: 64 Year
  Sex: Female
  Weight: 60 kg

DRUGS (9)
  1. PROVERA [Suspect]
     Indication: HORMONE REPLACEMENT THERAPY
     Dosage: 2.5 MG, ORAL
     Route: 048
     Dates: start: 19970626, end: 19990901
  2. PROVERA [Suspect]
     Indication: MENOPAUSAL SYMPTOMS
     Dosage: 2.5 MG, ORAL
     Route: 048
     Dates: start: 19970626, end: 19990901
  3. MEDROXYPROGESTERONE ACETATE [Suspect]
     Indication: MENOPAUSAL SYMPTOMS
     Dosage: 2.5 MG, ORAL
     Route: 048
     Dates: start: 19981020, end: 19990901
  4. PREMARIN [Suspect]
     Indication: HORMONE REPLACEMENT THERAPY
     Dosage: 0.625 MG, ORAL
     Route: 048
     Dates: start: 19970626, end: 19990901
  5. PREMARIN [Suspect]
     Indication: MENOPAUSAL SYMPTOMS
     Dosage: 0.625 MG, ORAL
     Route: 048
     Dates: start: 19970626, end: 19990901
  6. PREMPRO [Suspect]
     Indication: HORMONE REPLACEMENT THERAPY
     Dosage: 0.625/ 2.5MG, ORAL
     Route: 048
     Dates: start: 19990901, end: 20041101
  7. PREMPRO [Suspect]
     Indication: MENOPAUSAL SYMPTOMS
     Dosage: 0.625/ 2.5MG, ORAL
     Route: 048
     Dates: start: 19990901, end: 20041101
  8. FEMHRT [Suspect]
     Dates: start: 20030826, end: 20040226
  9. SYNTHROID [Concomitant]

REACTIONS (2)
  - BREAST CANCER FEMALE [None]
  - LYMPHOEDEMA [None]
